FAERS Safety Report 12216365 (Version 4)
Quarter: 2016Q3

REPORT INFORMATION
  Report Type: Report from Study
  Country: US (occurrence: US)
  Receive Date: 20160329
  Receipt Date: 20160814
  Transmission Date: 20161109
  Serious: No
  Sender: FDA-Public Use
  Company Number: US-AMGEN-USASL2016033685

PATIENT
  Age: 14 Year
  Sex: Female

DRUGS (1)
  1. ENBREL [Suspect]
     Active Substance: ETANERCEPT
     Indication: JUVENILE IDIOPATHIC ARTHRITIS
     Dosage: 50 MG, QWK
     Route: 065
     Dates: start: 20160315

REACTIONS (10)
  - Anxiety [Not Recovered/Not Resolved]
  - Tension [Unknown]
  - Joint swelling [Not Recovered/Not Resolved]
  - Injection site warmth [Recovered/Resolved]
  - Injection site haemorrhage [Unknown]
  - Insomnia [Unknown]
  - Injection site inflammation [Recovered/Resolved]
  - Rhinorrhoea [Recovering/Resolving]
  - Pain in extremity [Recovered/Resolved]
  - Injection site erythema [Recovered/Resolved]

NARRATIVE: CASE EVENT DATE: 201603
